FAERS Safety Report 7768530-2 (Version None)
Quarter: 2011Q3

REPORT INFORMATION
  Report Type: 
  Country: None (occurrence: None)
  Receive Date: 20110922
  Receipt Date: 20110607
  Transmission Date: 20111222
  Serious: Yes (Other)
  Sender: FDA-Public Use
  Company Number: US-ASTRAZENECA-2010SE17015

PATIENT
  Age: 67 Year
  Sex: Female

DRUGS (2)
  1. SEROQUEL [Suspect]
     Route: 048
  2. SEROQUEL [Suspect]
     Route: 048

REACTIONS (11)
  - NEURALGIA [None]
  - DEPRESSED MOOD [None]
  - DRUG DOSE OMISSION [None]
  - MENTAL DISORDER [None]
  - INSOMNIA [None]
  - CARDIAC FAILURE CONGESTIVE [None]
  - ARTHRITIS [None]
  - MOOD ALTERED [None]
  - PERIORBITAL OEDEMA [None]
  - DRUG WITHDRAWAL SYNDROME [None]
  - HYPERTENSION [None]
